FAERS Safety Report 24584627 (Version 1)
Quarter: 2024Q4

REPORT INFORMATION
  Report Type: Report from Study
  Country: GR (occurrence: GR)
  Receive Date: 20241106
  Receipt Date: 20241106
  Transmission Date: 20250115
  Serious: No
  Sender: KARYOPHARM THERAPEUTICS
  Company Number: GR-KARYOPHARM-2024KPT001749

PATIENT
  Sex: Male

DRUGS (4)
  1. SELINEXOR [Suspect]
     Active Substance: SELINEXOR
     Indication: Plasma cell myeloma
     Dosage: UNK, WEEKLY
     Route: 048
     Dates: start: 20241017
  2. ONDANSETRON [Concomitant]
     Active Substance: ONDANSETRON
  3. APREPITANT [Concomitant]
     Active Substance: APREPITANT
  4. OLANZAPINE [Concomitant]
     Active Substance: OLANZAPINE

REACTIONS (1)
  - Abdominal pain upper [Unknown]

NARRATIVE: CASE EVENT DATE: 20241024
